FAERS Safety Report 4472591-6 (Version None)
Quarter: 2004Q4

REPORT INFORMATION
  Report Type: 
  Country: None (occurrence: None)
  Receive Date: 20041008
  Receipt Date: 20040916
  Transmission Date: 20050328
  Serious: Yes (Hospitalization)
  Sender: FDA-Public Use
  Company Number: FR_040804601

PATIENT
  Age: 34 Year
  Sex: Female

DRUGS (2)
  1. ZYPREXA [Suspect]
     Indication: PSYCHOTIC DISORDER
     Dosage: 15 MG/1 DAY
     Dates: start: 20040624, end: 20040715
  2. TERCIAN (CYAMEMAZINE) [Concomitant]

REACTIONS (16)
  - ABNORMAL BEHAVIOUR [None]
  - BLOOD POTASSIUM DECREASED [None]
  - BRAIN OEDEMA [None]
  - COMA [None]
  - CONVULSION [None]
  - CREATININE URINE INCREASED [None]
  - HYPONATRAEMIA [None]
  - HYPOREFLEXIA [None]
  - LOSS OF CONSCIOUSNESS [None]
  - METABOLIC DISORDER [None]
  - POLYDIPSIA PSYCHOGENIC [None]
  - PSYCHOMOTOR AGITATION [None]
  - THYROXINE FREE INCREASED [None]
  - URINE CHLORIDE [None]
  - URINE SODIUM [None]
  - VOMITING [None]
